FAERS Safety Report 14362616 (Version 2)
Quarter: 2018Q1

REPORT INFORMATION
  Report Type: Spontaneous
  Country: PK (occurrence: PK)
  Receive Date: 20180108
  Receipt Date: 20180207
  Transmission Date: 20180509
  Serious: Yes (Other)
  Sender: FDA-Public Use
  Company Number: PK-JNJFOC-20180100841

PATIENT
  Age: 28 Year
  Sex: Female
  Weight: 47 kg

DRUGS (10)
  1. BEDAQUILINE [Suspect]
     Active Substance: BEDAQUILINE
     Indication: TUBERCULOSIS
     Dosage: FREQUENCY: 7 DAYS A WEEK
     Route: 048
     Dates: start: 20170213, end: 20170227
  2. PARA-AMINOSALICYLIC ACID [Suspect]
     Active Substance: AMINOSALICYLIC ACID
     Indication: TUBERCULOSIS
     Route: 048
     Dates: start: 20170219, end: 20171120
  3. MOXIFLOXACIN. [Suspect]
     Active Substance: MOXIFLOXACIN
     Indication: TUBERCULOSIS
     Route: 048
     Dates: start: 20170213
  4. PARA-AMINOSALICYLIC ACID [Suspect]
     Active Substance: AMINOSALICYLIC ACID
     Indication: TUBERCULOSIS
     Route: 048
     Dates: start: 20170213, end: 20170215
  5. BEDAQUILINE [Suspect]
     Active Substance: BEDAQUILINE
     Indication: TUBERCULOSIS
     Dosage: FREQUENCY: 3 DAYS A WEEK??COMPLETED 24 WEEKS OF THERAPY
     Route: 048
     Dates: start: 20170228, end: 20170731
  6. CAPREOMYCIN [Suspect]
     Active Substance: CAPREOMYCIN
     Indication: TUBERCULOSIS
     Dosage: COMPLETED 8 MONTHS OF THERAPY
     Route: 030
     Dates: start: 20170213, end: 20171021
  7. VITAMIN B6 [Concomitant]
     Active Substance: PYRIDOXINE HYDROCHLORIDE
     Indication: NEUROPATHY PERIPHERAL
     Route: 048
     Dates: start: 20170213
  8. CEFAZOLIN [Suspect]
     Active Substance: CEFAZOLIN
     Indication: TUBERCULOSIS
     Route: 048
     Dates: start: 20170213
  9. LINEZOLID. [Suspect]
     Active Substance: LINEZOLID
     Indication: TUBERCULOSIS
     Route: 048
     Dates: start: 20170213
  10. RANITIDINE. [Concomitant]
     Active Substance: RANITIDINE
     Indication: DYSPEPSIA
     Route: 048
     Dates: start: 20170216

REACTIONS (3)
  - Anaemia [Not Recovered/Not Resolved]
  - Diarrhoea [Recovered/Resolved]
  - Electrocardiogram QT prolonged [Recovered/Resolved]

NARRATIVE: CASE EVENT DATE: 201702
